FAERS Safety Report 12985063 (Version 1)
Quarter: 2016Q4

REPORT INFORMATION
  Report Type: Spontaneous
  Country: CA (occurrence: CA)
  Receive Date: 20161129
  Receipt Date: 20161129
  Transmission Date: 20170207
  Serious: Yes (Other)
  Sender: FDA-Public Use
  Company Number: CA-009507513-1611CAN011518

PATIENT
  Age: 24 Year
  Sex: Female

DRUGS (3)
  1. NUVARING [Suspect]
     Active Substance: ETHINYL ESTRADIOL\ETONOGESTREL
     Indication: CONTRACEPTION
     Dosage: 1 DOSAGE FORM, QW
     Route: 067
  2. VITAMINS (UNSPECIFIED) [Concomitant]
     Active Substance: VITAMINS
  3. RISPERIDONE. [Concomitant]
     Active Substance: RISPERIDONE
     Indication: CONTRACEPTION

REACTIONS (2)
  - Vaginal erosion [Recovering/Resolving]
  - Local reaction [Recovering/Resolving]
